FAERS Safety Report 9010702 (Version 1)
Quarter: 2013Q1

REPORT INFORMATION
  Report Type: Spontaneous
  Country: US (occurrence: US)
  Receive Date: 20130109
  Receipt Date: 20130109
  Transmission Date: 20140127
  Serious: Yes (Death)
  Sender: FDA-Public Use
  Company Number: US-009507513-1301USA001522

PATIENT
  Age: 74 Year
  Sex: Male

DRUGS (6)
  1. MONTELUKAST SODIUM [Suspect]
     Dosage: 10 MG NOCTE
  2. SPIRIVA [Suspect]
     Dosage: 18 MCG INHALATION
     Route: 055
  3. OXYGEN [Suspect]
     Dosage: 2L/MIN-15HR
  4. SERETIDE [Suspect]
  5. SALMETEROL XINAFOATE [Suspect]
  6. QUININE BISULFATE [Suspect]

REACTIONS (2)
  - Chronic obstructive pulmonary disease [Fatal]
  - Diarrhoea [Unknown]
